FAERS Safety Report 8342146-1 (Version None)
Quarter: 2012Q2

REPORT INFORMATION
  Report Type: 
  Country: None (occurrence: None)
  Receive Date: 20120507
  Receipt Date: 20120419
  Transmission Date: 20120825
  Serious: Yes (Hospitalization)
  Sender: FDA-Public Use
  Company Number: IT-BAXTER-2012BAX003576

PATIENT
  Sex: Male

DRUGS (1)
  1. SOLUZIONI PER DIALISI PERITONEALE BAXTER [Suspect]
     Route: 033

REACTIONS (2)
  - PERITONITIS BACTERIAL [None]
  - PYREXIA [None]
